FAERS Safety Report 17173232 (Version 1)
Quarter: 2019Q4

REPORT INFORMATION
  Report Type: Spontaneous
  Country: US (occurrence: US)
  Receive Date: 20191218
  Receipt Date: 20191218
  Transmission Date: 20200122
  Serious: No
  Sender: FDA-Public Use
  Company Number: US-009507513-1911USA008947

PATIENT
  Age: 29 Year
  Sex: Female
  Weight: 47.62 kg

DRUGS (1)
  1. NEXPLANON [Suspect]
     Active Substance: ETONOGESTREL
     Indication: CONTRACEPTION
     Dosage: LEFT/ IMPLANT, 3 YEAR
     Route: 059
     Dates: start: 20170531

REACTIONS (5)
  - Weight increased [Not Recovered/Not Resolved]
  - Mood swings [Not Recovered/Not Resolved]
  - Depression [Not Recovered/Not Resolved]
  - Amenorrhoea [Not Recovered/Not Resolved]
  - Stress [Not Recovered/Not Resolved]
